FAERS Safety Report 5475605-X (Version None)
Quarter: 2007Q4

REPORT INFORMATION
  Report Type: 
  Country: None (occurrence: None)
  Receive Date: 20071003
  Receipt Date: 20070321
  Transmission Date: 20080405
  Serious: No
  Sender: FDA-Public Use
  Company Number: US-KINGPHARMUSA00001-K200700341

PATIENT

DRUGS (4)
  1. SONATA [Suspect]
     Indication: INSOMNIA
     Dosage: 10 MG, QD, HS
     Route: 048
     Dates: start: 20070301, end: 20070301
  2. SONATA [Suspect]
     Dosage: 20 MG, QD, HS
     Route: 048
     Dates: start: 20070301, end: 20070301
  3. UNSPECIFIED BLOOD PRESSURE MEDICATION [Concomitant]
     Indication: HYPERTENSION
  4. LOVASTATIN [Concomitant]
     Indication: BLOOD CHOLESTEROL INCREASED

REACTIONS (1)
  - DRUG INEFFECTIVE [None]
